FAERS Safety Report 21664489 (Version 1)
Quarter: 2022Q4

REPORT INFORMATION
  Report Type: Spontaneous
  Country: NL (occurrence: NL)
  Receive Date: 20221130
  Receipt Date: 20221130
  Transmission Date: 20230113
  Serious: Yes (Life-Threatening, Hospitalization, Other)
  Sender: FDA-Public Use
  Company Number: None

PATIENT

DRUGS (1)
  1. DINOPROSTONE [Suspect]
     Active Substance: DINOPROSTONE
     Indication: Labour induction
     Dosage: 1X
     Route: 067
     Dates: start: 20160217

REACTIONS (4)
  - Loss of consciousness [Unknown]
  - Psychological trauma [Unknown]
  - Nausea [Unknown]
  - Uterine hypertonus [Recovered/Resolved]
